FAERS Safety Report 10399142 (Version 1)
Quarter: 2014Q3

REPORT INFORMATION
  Report Type: Spontaneous
  Country: US (occurrence: None)
  Receive Date: 20140818
  Receipt Date: 20140818
  Transmission Date: 20150326
  Serious: Yes (Other)
  Sender: FDA-Public Use
  Company Number: None

PATIENT
  Age: 55 Year
  Sex: Male
  Weight: 82.56 kg

DRUGS (1)
  1. CRESTOR [Suspect]
     Active Substance: ROSUVASTATIN CALCIUM
     Indication: HYPERLIPIDAEMIA
     Dosage: ONE PILL ONCE DAILY TAKEN BY MOUTH
     Route: 048
     Dates: start: 20040809, end: 20140716

REACTIONS (3)
  - Asthenia [None]
  - Neuropathy peripheral [None]
  - Myalgia [None]

NARRATIVE: CASE EVENT DATE: 20140716
